FAERS Safety Report 7981708 (Version 2)
Quarter: 2012Q4

REPORT INFORMATION
  Report Type: 
  Country: CA (occurrence: CA)
  Receive Date: 20110608
  Receipt Date: 20121109
  Transmission Date: 20130627
  Serious: Yes (Other)
  Sender: FDA-Public Use
  Company Number: PHMT2006CA02082

PATIENT
  Sex: Male

DRUGS (1)
  1. SANDOSTATIN LAR [Suspect]
     Indication: ACROMEGALY
     Dosage: 30 mg, q 3 weeks
     Dates: start: 20060509

REACTIONS (3)
  - Intestinal polyp [Unknown]
  - Blood pressure increased [Unknown]
  - Arthralgia [Unknown]
